FAERS Safety Report 10446292 (Version 5)
Quarter: 2015Q1

REPORT INFORMATION
  Report Type: Spontaneous
  Country: BE (occurrence: BE)
  Receive Date: 20140911
  Receipt Date: 20150327
  Transmission Date: 20150720
  Serious: Yes (Other)
  Sender: FDA-Public Use
  Company Number: BE-BEH-2014044355

PATIENT
  Sex: Male
  Weight: 75 kg

DRUGS (9)
  1. L-THYROXINE 50 UG [Concomitant]
  2. SOLU-CORTEF 50 MG [Concomitant]
  3. INDERAL RETARD MITIS 80 MG [Concomitant]
  4. MANIPREX 500 MG [Concomitant]
  5. REMERGON [Concomitant]
     Active Substance: MIRTAZAPINE
  6. HIZENTRA [Suspect]
     Active Substance: HUMAN IMMUNOGLOBULIN G
     Indication: HYPOGAMMAGLOBULINAEMIA
     Dosage: 200 MG/ML
     Route: 058
     Dates: start: 20140122, end: 20140630
  7. COTRAMAL RETARD 100 MG [Concomitant]
  8. TOPAMAX 25 MG [Concomitant]
  9. STAURODORM 27 MG [Concomitant]
     Dosage: 1/2 TABLET

REACTIONS (2)
  - Drug effect incomplete [Unknown]
  - Fatigue [Unknown]
